FAERS Safety Report 15300333 (Version 1)
Quarter: 2018Q3

REPORT INFORMATION
  Report Type: Report from Study
  Country: DE (occurrence: DE)
  Receive Date: 20180821
  Receipt Date: 20180821
  Transmission Date: 20181010
  Serious: Yes (Hospitalization)
  Sender: FDA-Public Use
  Company Number: DE-TEVA-2018-DE-944464

PATIENT
  Age: 69 Year
  Sex: Female
  Weight: 77 kg

DRUGS (27)
  1. FERRLECIT [Concomitant]
     Active Substance: SODIUM FERRIC GLUCONATE COMPLEX
     Indication: HYPOCHROMIC ANAEMIA
     Dosage: 40 MILLIGRAM DAILY;
     Route: 048
     Dates: start: 20160718
  2. FORTECORTIN [Concomitant]
     Active Substance: DEXAMETHASONE
     Dosage: 16 MILLIGRAM DAILY; 2?0?0 ON DAY 2 AND DAY 3 OF CHEMOTHERAPY
     Route: 048
     Dates: start: 20160725
  3. GRANISETRON [Concomitant]
     Active Substance: GRANISETRON
     Dosage: 1 MILLIGRAM, ON CHEMOTHERAPY DAYS
     Route: 042
     Dates: start: 20160725
  4. 5?FLUOROURACIL [Suspect]
     Active Substance: FLUOROURACIL
     Indication: COLORECTAL CANCER METASTATIC
     Dosage: DOSE: 320?500 MG
     Route: 040
     Dates: start: 20160725, end: 20160927
  5. FERRLECIT [Concomitant]
     Active Substance: SODIUM FERRIC GLUCONATE COMPLEX
     Indication: IRON DEFICIENCY
     Route: 065
  6. OXALIPLATIN. [Concomitant]
     Active Substance: OXALIPLATIN
     Indication: COLORECTAL CANCER
     Dosage: 95?153 MG
     Route: 042
     Dates: start: 20160725, end: 20160927
  7. CLEXANE [Concomitant]
     Active Substance: ENOXAPARIN SODIUM
     Indication: ATRIAL FIBRILLATION
     Dosage: .4 ML DAILY;
     Route: 058
     Dates: end: 20160718
  8. MCP [Concomitant]
     Active Substance: METOCLOPRAMIDE HYDROCHLORIDE
     Dosage: 10 MILLIGRAM
     Route: 048
     Dates: start: 20160718
  9. ALDACTONE [Concomitant]
     Active Substance: SPIRONOLACTONE
     Indication: OEDEMA
     Dosage: 25 MILLIGRAM DAILY;
     Route: 048
     Dates: start: 20160830
  10. FORTIMEL [Concomitant]
     Active Substance: DIETARY SUPPLEMENT
     Indication: DECREASED APPETITE
     Dosage: 3 DOSAGE FORMS DAILY; AS REQUIRED
     Route: 048
     Dates: start: 20160719
  11. GRANISETRON [Concomitant]
     Active Substance: GRANISETRON
     Dosage: 1 MILLIGRAM DAILY; 1?0?0, DAY 2 AND 3 OF CHEMOTHERAPY
     Route: 048
     Dates: start: 20160725
  12. CLEXANE [Concomitant]
     Active Substance: ENOXAPARIN SODIUM
     Indication: ATRIAL FIBRILLATION
     Dosage: 80 MILLIGRAM DAILY;
     Route: 058
     Dates: start: 20161010
  13. LOPEDIUM [Concomitant]
     Active Substance: LOPERAMIDE
     Dosage: 2 MILLIGRAM
     Route: 048
     Dates: start: 20160718
  14. TOREM [Concomitant]
     Active Substance: TORSEMIDE
     Dosage: 10 MILLIGRAM DAILY;
     Route: 048
     Dates: end: 20160830
  15. ALDACTONE [Concomitant]
     Active Substance: SPIRONOLACTONE
     Indication: ASCITES
     Route: 065
  16. 5?FLUOROURACIL [Suspect]
     Active Substance: FLUOROURACIL
     Dosage: DOSE: 1900?3025 MG
     Route: 041
     Dates: start: 20160725, end: 20160929
  17. AVASTIN [Suspect]
     Active Substance: BEVACIZUMAB
     Indication: COLORECTAL CANCER METASTATIC
     Dosage: DAILY DOSE: 387.5 MG MILLGRAM(S) EVERY 2 WEEKS
     Route: 042
     Dates: start: 20160725
  18. AVASTIN [Suspect]
     Active Substance: BEVACIZUMAB
     Dosage: DAILY DOSE: 290 MG MILLGRAM(S) EVERY 2 WEEKS
     Route: 042
     Dates: start: 20160927, end: 20160927
  19. MELPERON [Concomitant]
     Active Substance: MELPERONE
     Indication: DEPRESSION
     Dosage: 5 ML
     Route: 048
     Dates: start: 20160804
  20. POTASSIUM CHLORIDE. [Concomitant]
     Active Substance: POTASSIUM CHLORIDE
     Indication: HYPOKALAEMIA
     Dosage: 40 MVAL
     Route: 042
     Dates: start: 20160912, end: 20160912
  21. SPIRONOLACTON [Concomitant]
     Active Substance: SPIRONOLACTONE
     Indication: ASCITES
     Route: 065
  22. CLEXANE [Concomitant]
     Active Substance: ENOXAPARIN SODIUM
     Indication: EMBOLISM
     Route: 065
  23. PANTOPRAZOL [Concomitant]
     Active Substance: PANTOPRAZOLE SODIUM
     Dosage: 40 MILLIGRAM DAILY;
     Route: 048
     Dates: start: 20160718
  24. SPIRONOLACTON [Concomitant]
     Active Substance: SPIRONOLACTONE
     Indication: OEDEMA
     Dosage: 50 MILLIGRAM DAILY; 1?0?0
     Route: 048
     Dates: start: 20160804
  25. FOLINIC ACID [Concomitant]
     Active Substance: LEUCOVORIN
     Indication: COLORECTAL CANCER
     Dosage: 320?500 MG
     Route: 042
     Dates: start: 20160725, end: 20160927
  26. TOREM [Concomitant]
     Active Substance: TORSEMIDE
     Indication: POLYURIA
     Dosage: 10 MG, 1?1/2?0
     Route: 048
     Dates: start: 20160718, end: 20160829
  27. POTASSIUM CHLORIDE. [Concomitant]
     Active Substance: POTASSIUM CHLORIDE
     Dosage: 40 MVAL
     Route: 042
     Dates: start: 20160630, end: 20160630

REACTIONS (2)
  - Deep vein thrombosis [Unknown]
  - Oesophagitis haemorrhagic [Unknown]

NARRATIVE: CASE EVENT DATE: 20160804
